FAERS Safety Report 6142261-7 (Version None)
Quarter: 2009Q2

REPORT INFORMATION
  Report Type: 
  Country: None (occurrence: None)
  Receive Date: 20090402
  Receipt Date: 20090402
  Transmission Date: 20091009
  Serious: Yes (Hospitalization)
  Sender: FDA-Public Use
  Company Number: None

PATIENT
  Sex: Male
  Weight: 80.7403 kg

DRUGS (1)
  1. FEIBA [Suspect]
     Indication: HAEMOPHILIA
     Dosage: 4908 PRN IV BOLUS
     Route: 040

REACTIONS (2)
  - DYSPNOEA [None]
  - ERYTHEMA [None]
